FAERS Safety Report 15190407 (Version 9)
Quarter: 2019Q1

REPORT INFORMATION
  Report Type: Spontaneous
  Country: CZ (occurrence: CZ)
  Receive Date: 20180724
  Receipt Date: 20190306
  Transmission Date: 20190417
  Serious: Yes (Life-Threatening, Hospitalization, Other)
  Sender: FDA-Public Use
  Company Number: CZ-MYLANLABS-2018M1052480

PATIENT
  Age: 36 Year
  Sex: Female

DRUGS (11)
  1. FLUCONAZOLE. [Suspect]
     Active Substance: FLUCONAZOLE
     Indication: PNEUMONIA
     Dosage: UNK
     Route: 065
  2. SULPHAMETHOXAZOLE/TRIMETHOPRIM [Suspect]
     Active Substance: SULFAMETHOXAZOLE\TRIMETHOPRIM
     Indication: RESPIRATORY TRACT INFECTION
     Dosage: UNK
     Route: 065
  3. MEROPENEM. [Suspect]
     Active Substance: MEROPENEM
     Indication: SEPSIS
     Dosage: UNK
     Route: 065
  4. COTRIMOXAZOLE [Concomitant]
     Active Substance: SULFAMETHOXAZOLE\TRIMETHOPRIM
     Indication: RESPIRATORY TRACT INFECTION
     Dosage: UNK
     Route: 065
  5. CLINDAMYCIN. [Suspect]
     Active Substance: CLINDAMYCIN
     Indication: TOOTH INFECTION
     Dosage: UNK
     Dates: start: 201704
  6. CLINDAMYCIN. [Suspect]
     Active Substance: CLINDAMYCIN
     Indication: SWELLING
  7. CIPROFLOXACIN. [Suspect]
     Active Substance: CIPROFLOXACIN
     Indication: PNEUMONIA
     Dosage: UNK
     Route: 065
  8. METRONIDAZOLE. [Suspect]
     Active Substance: METRONIDAZOLE
     Indication: SEPSIS
     Dosage: UNK
     Route: 065
     Dates: start: 201704
  9. CLINDAMYCIN. [Suspect]
     Active Substance: CLINDAMYCIN
     Indication: FACE OEDEMA
  10. PIPERACILLIN/TAZOBACTAM [Suspect]
     Active Substance: PIPERACILLIN SODIUM\TAZOBACTAM SODIUM
     Indication: PNEUMONIA
     Dosage: UNK
     Route: 065
  11. GENTAMICIN                         /00047102/ [Suspect]
     Active Substance: GENTAMICIN
     Indication: SEPSIS
     Dosage: UNK
     Route: 065
     Dates: start: 201704

REACTIONS (14)
  - Atrial fibrillation [Unknown]
  - Dyspnoea [Not Recovered/Not Resolved]
  - Off label use [Unknown]
  - Drug ineffective for unapproved indication [Unknown]
  - Hypoglossal nerve paresis [Unknown]
  - Disease progression [Unknown]
  - Drug ineffective [Unknown]
  - Inflammatory marker increased [Recovered/Resolved]
  - Malnutrition [Unknown]
  - Respiratory failure [Recovered/Resolved]
  - Thrombosis [Unknown]
  - Anaemia [Unknown]
  - Dysphagia [Not Recovered/Not Resolved]
  - Chest pain [Not Recovered/Not Resolved]

NARRATIVE: CASE EVENT DATE: 20170413
